FAERS Safety Report 12777935 (Version 1)
Quarter: 2016Q3

REPORT INFORMATION
  Report Type: Spontaneous
  Country: US (occurrence: US)
  Receive Date: 20160924
  Receipt Date: 20160924
  Transmission Date: 20161109
  Serious: No
  Sender: FDA-Public Use
  Company Number: US-JAZZ-2016-US-010919

PATIENT
  Sex: Male

DRUGS (33)
  1. PREVACID [Concomitant]
     Active Substance: LANSOPRAZOLE
  2. AREDSAN [Concomitant]
  3. PREVACID [Concomitant]
     Active Substance: LANSOPRAZOLE
  4. PROVIGIL [Concomitant]
     Active Substance: MODAFINIL
  5. BENADRYL ALLERGY [Concomitant]
     Active Substance: DIPHENHYDRAMINE HYDROCHLORIDE
  6. CROMOLYN SODIUM. [Concomitant]
     Active Substance: CROMOLYN SODIUM
  7. SODIUM CHLORIDE. [Concomitant]
     Active Substance: SODIUM CHLORIDE
  8. VITAMIN C TR [Concomitant]
  9. L-CARNITINE [Concomitant]
     Active Substance: LEVOCARNITINE
  10. CLINDAMYCIN PH [Concomitant]
  11. POTASSIUM CITRATE ER [Concomitant]
  12. XYREM [Suspect]
     Active Substance: SODIUM OXYBATE
     Indication: CATAPLEXY
     Dosage: DOSE ADJUSTMENTS
     Route: 048
     Dates: start: 201411, end: 201602
  13. XYREM [Suspect]
     Active Substance: SODIUM OXYBATE
     Dosage: 4.5 G, BID
     Route: 048
     Dates: start: 201602
  14. PRAVASTATIN. [Concomitant]
     Active Substance: PRAVASTATIN
  15. ADDERALL [Concomitant]
     Active Substance: AMPHETAMINE ASPARTATE\AMPHETAMINE SULFATE\DEXTROAMPHETAMINE SACCHARATE\DEXTROAMPHETAMINE SULFATE
  16. IMITREX [Concomitant]
     Active Substance: SUMATRIPTAN SUCCINATE
  17. LEVOTHYROXINE. [Concomitant]
     Active Substance: LEVOTHYROXINE
  18. FLUTICASONE PROPIONATE. [Concomitant]
     Active Substance: FLUTICASONE PROPIONATE
  19. PROBIOTIC [Concomitant]
     Active Substance: PROBIOTICS NOS
  20. IRON [Concomitant]
     Active Substance: IRON
  21. XYREM [Suspect]
     Active Substance: SODIUM OXYBATE
     Indication: NARCOLEPSY
     Dosage: 4.5 G, BID
     Route: 048
     Dates: start: 201212, end: 201411
  22. QNASL [Concomitant]
     Active Substance: BECLOMETHASONE DIPROPIONATE
  23. OXYCODONE AND ACETAMINOPHEN [Concomitant]
     Active Substance: ACETAMINOPHEN\OXYCODONE HYDROCHLORIDE
  24. SINGULAIR [Concomitant]
     Active Substance: MONTELUKAST SODIUM
  25. VITAMIN B-1 [Concomitant]
     Active Substance: THIAMINE
  26. CALCIUM ACETATE. [Concomitant]
     Active Substance: CALCIUM ACETATE
  27. TRETINOIN. [Concomitant]
     Active Substance: TRETINOIN
  28. CIALIS [Concomitant]
     Active Substance: TADALAFIL
  29. VITAMIN A [Concomitant]
     Active Substance: VITAMIN A
  30. VITAMIN D [Concomitant]
     Active Substance: CHOLECALCIFEROL
  31. DESOXYN [Concomitant]
     Active Substance: METHAMPHETAMINE HYDROCHLORIDE
  32. ATENOLOL. [Concomitant]
     Active Substance: ATENOLOL
  33. LORATADINE. [Concomitant]
     Active Substance: LORATADINE

REACTIONS (1)
  - Seasonal allergy [Not Recovered/Not Resolved]
